FAERS Safety Report 14894627 (Version 3)
Quarter: 2018Q4

REPORT INFORMATION
  Report Type: Report from Study
  Country: DE (occurrence: DE)
  Receive Date: 20180515
  Receipt Date: 20181226
  Transmission Date: 20190204
  Serious: Yes (Hospitalization, Other)
  Sender: FDA-Public Use
  Company Number: DE-ALKEM LABORATORIES LIMITED-DE-ALKEM-2015-00611

PATIENT
  Age: 75 Year
  Sex: Male
  Weight: 81 kg

DRUGS (19)
  1. TOCILIZUMAB SOLUTION FOR INJECTION IN PRE-FILLED SYRINGE [Suspect]
     Active Substance: TOCILIZUMAB
     Indication: MYALGIA
     Dosage: 324 MG, 12 PER DAY
     Route: 058
     Dates: start: 20150706, end: 20171025
  2. CORTISONE ACETATE. [Concomitant]
     Active Substance: CORTISONE ACETATE
     Indication: PRODUCT USED FOR UNKNOWN INDICATION
     Dosage: UNKNOWN
     Route: 065
  3. ESCITALOPRAM [Concomitant]
     Active Substance: ESCITALOPRAM OXALATE
     Dosage: 5 DROP, UNK
     Route: 048
  4. TOCILIZUMAB SOLUTION FOR INJECTION IN PRE-FILLED SYRINGE [Suspect]
     Active Substance: TOCILIZUMAB
     Indication: VASCULITIS
     Dosage: 162 MG, 14 PER DAY
     Route: 058
  5. TOCILIZUMAB SOLUTION FOR INJECTION IN PRE-FILLED SYRINGE [Suspect]
     Active Substance: TOCILIZUMAB
     Dosage: 162 MG, 1 PER DAY
     Route: 058
     Dates: end: 201506
  6. TOCILIZUMAB SOLUTION FOR INJECTION IN PRE-FILLED SYRINGE [Suspect]
     Active Substance: TOCILIZUMAB
     Dosage: 162 MG, FOR EVERY 10 DAYS
     Route: 058
     Dates: start: 20180414
  7. FRAXIPARINE [Suspect]
     Active Substance: NADROPARIN CALCIUM
     Indication: VENOUS THROMBOSIS LIMB
     Dosage: UNK
     Route: 065
  8. ESCITALOPRAM [Concomitant]
     Active Substance: ESCITALOPRAM OXALATE
     Indication: PRODUCT USED FOR UNKNOWN INDICATION
     Dosage: 10 DROP, UNK
     Route: 048
  9. LISIHEXAL [Concomitant]
     Active Substance: LISINOPRIL
     Indication: PRODUCT USED FOR UNKNOWN INDICATION
     Dosage: 20 MG, UNK
     Route: 065
  10. QUETIAPINE FUMARATE. [Suspect]
     Active Substance: QUETIAPINE FUMARATE
     Indication: PRODUCT USED FOR UNKNOWN INDICATION
     Dosage: 25 MG, QD
     Route: 065
  11. CHOLECALCIFEROL [Suspect]
     Active Substance: CHOLECALCIFEROL
     Indication: OSTEOPOROSIS
     Dosage: 1000 IU, UNK
     Route: 065
     Dates: start: 201204
  12. TOCILIZUMAB SOLUTION FOR INJECTION IN PRE-FILLED SYRINGE [Suspect]
     Active Substance: TOCILIZUMAB
     Dosage: 162 MG, FOR EVERY 14 DAYS
     Route: 058
     Dates: start: 201704, end: 20171025
  13. CLEXANE [Suspect]
     Active Substance: ENOXAPARIN SODIUM
     Indication: VENOUS THROMBOSIS LIMB
     Dosage: UNK
     Route: 065
     Dates: start: 201507
  14. PROLIA [Suspect]
     Active Substance: DENOSUMAB
     Indication: OSTEOPOROSIS
     Dosage: 60 MG, 6 PER MONTH
     Route: 058
     Dates: start: 201405
  15. ESCITALOPRAM [Concomitant]
     Active Substance: ESCITALOPRAM OXALATE
     Dosage: 8 DROP, UNK
     Route: 048
  16. PANTOPRAZOLE [Concomitant]
     Active Substance: PANTOPRAZOLE
     Indication: PRODUCT USED FOR UNKNOWN INDICATION
     Dosage: UNK
     Route: 065
  17. TOCILIZUMAB SOLUTION FOR INJECTION IN PRE-FILLED SYRINGE [Suspect]
     Active Substance: TOCILIZUMAB
     Dosage: 162 MG, 1 PER DAY
     Route: 058
     Dates: start: 20180131
  18. TOCILIZUMAB SOLUTION FOR INJECTION IN PRE-FILLED SYRINGE [Suspect]
     Active Substance: TOCILIZUMAB
     Dosage: 162 MG, 3 PER WEEK
     Route: 058
     Dates: start: 201811
  19. TOCILIZUMAB SOLUTION FOR INJECTION IN PRE-FILLED SYRINGE [Suspect]
     Active Substance: TOCILIZUMAB
     Indication: RHEUMATOID ARTHRITIS
     Dosage: 162 MG, 1 PER WEEK
     Route: 058
     Dates: start: 20140601, end: 201506

REACTIONS (18)
  - Fall [Unknown]
  - Suture rupture [Recovered/Resolved]
  - Soft tissue disorder [Recovered/Resolved]
  - Impaired healing [Recovered/Resolved]
  - Prostate cancer [Not Recovered/Not Resolved]
  - Hyperaesthesia [Unknown]
  - Sepsis [Recovering/Resolving]
  - Venous thrombosis limb [Not Recovered/Not Resolved]
  - Leukopenia [Recovering/Resolving]
  - Erysipelas [Recovering/Resolving]
  - Lymphoedema [Recovered/Resolved]
  - Platelet count decreased [Unknown]
  - Dysuria [Unknown]
  - Lymphocele [Recovered/Resolved]
  - Autoimmune disorder [Unknown]
  - Depression [Not Recovered/Not Resolved]
  - Rash erythematous [Unknown]
  - Sleep disorder [Unknown]

NARRATIVE: CASE EVENT DATE: 201407
